FAERS Safety Report 19087858 (Version 28)
Quarter: 2025Q2

REPORT INFORMATION
  Report Type: Spontaneous
  Country: US (occurrence: US)
  Receive Date: 20210402
  Receipt Date: 20250612
  Transmission Date: 20250716
  Serious: Yes (Other)
  Sender: DAIICHI
  Company Number: US-DSJP-DSU-2021-110229

PATIENT
  Sex: Female

DRUGS (5)
  1. TURALIO [Suspect]
     Active Substance: PEXIDARTINIB HYDROCHLORIDE
     Indication: Synovitis
     Dosage: 125 MG, BID
     Route: 048
     Dates: start: 20210321
  2. TURALIO [Suspect]
     Active Substance: PEXIDARTINIB HYDROCHLORIDE
     Indication: Giant cell tumour of tendon sheath
     Dosage: 400 MG, BID
     Route: 048
     Dates: start: 20210324, end: 20210513
  3. TURALIO [Suspect]
     Active Substance: PEXIDARTINIB HYDROCHLORIDE
     Route: 048
     Dates: start: 20210324
  4. TURALIO [Suspect]
     Active Substance: PEXIDARTINIB HYDROCHLORIDE
     Dosage: 200 MG, BID
     Route: 048
     Dates: start: 20210324
  5. TURALIO [Suspect]
     Active Substance: PEXIDARTINIB HYDROCHLORIDE
     Dosage: 125 MG, BID
     Route: 048
     Dates: start: 20210324

REACTIONS (38)
  - Neutropenia [Recovered/Resolved]
  - Joint swelling [Not Recovered/Not Resolved]
  - Laboratory test abnormal [Recovered/Resolved]
  - Back pain [Recovered/Resolved]
  - Nail cuticle fissure [Not Recovered/Not Resolved]
  - Diarrhoea [Not Recovered/Not Resolved]
  - Vulval ulceration [Not Recovered/Not Resolved]
  - Cough [Not Recovered/Not Resolved]
  - Skin lesion [Unknown]
  - Vulvovaginal rash [Not Recovered/Not Resolved]
  - Vulvovaginal pain [Not Recovered/Not Resolved]
  - Vulvovaginal inflammation [Unknown]
  - Oral mucosal eruption [Recovered/Resolved]
  - Behcet^s syndrome [Not Recovered/Not Resolved]
  - COVID-19 [Recovered/Resolved]
  - Herpes zoster [Recovered/Resolved]
  - Nephrolithiasis [Recovering/Resolving]
  - Pain [Not Recovered/Not Resolved]
  - Nasopharyngitis [Not Recovered/Not Resolved]
  - Anal pruritus [Not Recovered/Not Resolved]
  - Poor quality sleep [Not Recovered/Not Resolved]
  - Proctalgia [Not Recovered/Not Resolved]
  - Nail disorder [Not Recovered/Not Resolved]
  - Viral pharyngitis [Recovered/Resolved]
  - Hair colour changes [Not Recovered/Not Resolved]
  - Mouth ulceration [Not Recovered/Not Resolved]
  - Constipation [Recovered/Resolved]
  - Skin discolouration [Not Recovered/Not Resolved]
  - Swelling face [Not Recovered/Not Resolved]
  - Rash [Recovered/Resolved]
  - Fatigue [Not Recovered/Not Resolved]
  - Pruritus [Not Recovered/Not Resolved]
  - Alopecia [Not Recovered/Not Resolved]
  - Therapy interrupted [Unknown]
  - Therapy cessation [Unknown]
  - Product dose omission issue [Not Recovered/Not Resolved]
  - Incorrect dose administered [Recovered/Resolved]
  - Product dose omission issue [Not Recovered/Not Resolved]

NARRATIVE: CASE EVENT DATE: 20210101
